FAERS Safety Report 9972220 (Version 1)
Quarter: 2014Q1

REPORT INFORMATION
  Report Type: Spontaneous
  Country: JP (occurrence: JP)
  Receive Date: 20140306
  Receipt Date: 20140306
  Transmission Date: 20141002
  Serious: Yes (Hospitalization)
  Sender: FDA-Public Use
  Company Number: JP-B.I. PHARMACEUTICALS,INC./RIDGEFIELD-2014-BI-08824NB

PATIENT
  Age: 72 Year
  Sex: Female

DRUGS (8)
  1. MIRAPEX LA [Suspect]
     Indication: PRODUCT USED FOR UNKNOWN INDICATION
     Dosage: 3 MG
     Route: 048
  2. MADOPAR [Concomitant]
     Route: 048
  3. METHOTREXATE [Concomitant]
     Dosage: 0.8571 MG
     Route: 048
  4. PREDONINE [Concomitant]
     Dosage: 10 MG
     Route: 048
  5. SALAZOSULFAPYRIDINE [Concomitant]
     Dosage: 600 MG
     Route: 048
  6. DICLOFENAC NA [Concomitant]
     Dosage: 75 MG
     Route: 048
  7. ETIZOLAM [Concomitant]
     Dosage: 0.5 MG
     Route: 048
  8. GASRICK D [Concomitant]
     Dosage: 20 MG
     Route: 048

REACTIONS (3)
  - Decreased appetite [Unknown]
  - Dizziness [Recovered/Resolved]
  - General physical health deterioration [Recovered/Resolved]
